FAERS Safety Report 9846967 (Version 1)
Quarter: 2013Q4

REPORT INFORMATION
  Report Type: Spontaneous
  Country: US (occurrence: None)
  Receive Date: 20131219
  Receipt Date: 20131219
  Transmission Date: 20140711
  Serious: Yes (Other)
  Sender: FDA-Public Use
  Company Number: 163-20785-13092142

PATIENT
  Age: 68 Year
  Sex: Male
  Weight: 72.12 kg

DRUGS (11)
  1. THALOMID [Suspect]
     Indication: PLASMA CELL MYELOMA
     Dosage: 1 IN 1 D
     Route: 048
     Dates: start: 20130325
  2. VORICONAZOLE [Concomitant]
  3. CALTRATE + VITAMIN D [Concomitant]
  4. DEXAMETHASONE [Concomitant]
  5. ACYCLOVIR [Concomitant]
  6. OMEPRAZOLE [Concomitant]
  7. DAPSONE [Concomitant]
  8. VITAMIN B1 [Concomitant]
  9. LORAZEPAM [Concomitant]
  10. PAROXETINE [Concomitant]
  11. ALPRAZOLAM [Concomitant]

REACTIONS (1)
  - Fungal infection [None]
